FAERS Safety Report 5379340-8 (Version None)
Quarter: 2007Q3

REPORT INFORMATION
  Report Type: 
  Country: None (occurrence: None)
  Receive Date: 20070705
  Receipt Date: 20070626
  Transmission Date: 20080115
  Serious: Yes (Hospitalization)
  Sender: FDA-Public Use
  Company Number: FR-PFIZER INC-2007053071

PATIENT
  Age: 41 Year
  Sex: Male
  Weight: 72 kg

DRUGS (6)
  1. AMLODIPINE [Suspect]
     Route: 048
  2. RENITEC [Suspect]
     Route: 048
  3. SOLU-MEDROL [Suspect]
     Route: 048
  4. PRAVASTATIN [Suspect]
     Route: 048
     Dates: start: 20050601, end: 20070401
  5. NEORAL [Suspect]
     Route: 048
     Dates: start: 20050601, end: 20070501
  6. CELLCEPT [Suspect]
     Route: 048
     Dates: start: 20050601, end: 20070520

REACTIONS (5)
  - CEREBELLAR SYNDROME [None]
  - CONVULSION [None]
  - DELIRIUM [None]
  - ENCEPHALOPATHY [None]
  - INDIFFERENCE [None]
